APPROVED DRUG PRODUCT: SUDAFED 24 HOUR
Active Ingredient: PSEUDOEPHEDRINE HYDROCHLORIDE
Strength: 240MG
Dosage Form/Route: TABLET, EXTENDED RELEASE;ORAL
Application: N020021 | Product #002
Applicant: KENVUE BRANDS LLC
Approved: Dec 15, 1992 | RLD: Yes | RS: No | Type: DISCN